FAERS Safety Report 14566046 (Version 1)
Quarter: 2018Q1

REPORT INFORMATION
  Report Type: Spontaneous
  Country: AU (occurrence: AU)
  Receive Date: 20180223
  Receipt Date: 20180223
  Transmission Date: 20180509
  Serious: Yes (Hospitalization)
  Sender: FDA-Public Use
  Company Number: AU-B.I. PHARMACEUTICALS,INC./RIDGEFIELD-2018-BI-009342

PATIENT
  Age: 74 Year
  Sex: Male

DRUGS (1)
  1. PRADAXA [Suspect]
     Active Substance: DABIGATRAN ETEXILATE MESYLATE
     Indication: ATRIAL FIBRILLATION
     Route: 065

REACTIONS (8)
  - Acetabulum fracture [Unknown]
  - Ilium fracture [Unknown]
  - Abdominal pain lower [Unknown]
  - Retroperitoneal haematoma [Unknown]
  - Haemorrhage [Unknown]
  - Joint range of motion decreased [Unknown]
  - Arthralgia [Unknown]
  - Pelvic fracture [Unknown]
